FAERS Safety Report 17577022 (Version 2)
Quarter: 2022Q1

REPORT INFORMATION
  Report Type: Report from Study
  Country: US (occurrence: US)
  Receive Date: 20200324
  Receipt Date: 20220121
  Transmission Date: 20220424
  Serious: Yes (Death)
  Sender: FDA-Public Use
  Company Number: US-NOVARTISPH-NVSC2020US082062

PATIENT
  Sex: Male
  Weight: 95.238 kg

DRUGS (3)
  1. COSENTYX [Suspect]
     Active Substance: SECUKINUMAB
     Indication: Product used for unknown indication
     Dosage: UNK UNK, QMO
     Route: 058
  2. XARELTO [Concomitant]
     Active Substance: RIVAROXABAN
     Indication: Diabetes mellitus
     Dosage: UNK
     Route: 065
  3. AMIODARONE [Concomitant]
     Active Substance: AMIODARONE
     Indication: Dementia
     Dosage: UNK
     Route: 065

REACTIONS (1)
  - Death [Fatal]
